FAERS Safety Report 5924514-8 (Version None)
Quarter: 2008Q4

REPORT INFORMATION
  Report Type: 
  Country: None (occurrence: None)
  Receive Date: 20081020
  Receipt Date: 20081008
  Transmission Date: 20090506
  Serious: Yes (Other)
  Sender: FDA-Public Use
  Company Number: US-PFIZER INC-2008084807

PATIENT
  Sex: Female

DRUGS (6)
  1. TIKOSYN [Suspect]
     Indication: ATRIAL FIBRILLATION
     Dates: start: 20080501
  2. LEVOXYL [Concomitant]
  3. WARFARIN SODIUM [Concomitant]
  4. TOPROL-XL [Concomitant]
  5. DIAZEPAM [Concomitant]
  6. PREMARIN [Concomitant]

REACTIONS (2)
  - CONDITION AGGRAVATED [None]
  - ROTATOR CUFF SYNDROME [None]
